FAERS Safety Report 15497319 (Version 1)
Quarter: 2018Q4

REPORT INFORMATION
  Report Type: Spontaneous
  Country: US (occurrence: US)
  Receive Date: 20181013
  Receipt Date: 20181013
  Transmission Date: 20190205
  Serious: Yes (Hospitalization)
  Sender: FDA-Public Use
  Company Number: None

PATIENT
  Age: 53 Year
  Sex: Female

DRUGS (6)
  1. OTEZLA [Concomitant]
     Active Substance: APREMILAST
  2. ALLERGY MEDS [Concomitant]
  3. XARELTO [Concomitant]
     Active Substance: RIVAROXABAN
  4. CHOL [Concomitant]
  5. HUMIRA [Suspect]
     Active Substance: ADALIMUMAB
     Indication: PSORIATIC ARTHROPATHY
     Dosage: ?          OTHER FREQUENCY:EVERY OTHER WEEK;?
     Route: 058
  6. THYROID MEDS [Concomitant]

REACTIONS (5)
  - Peripheral swelling [None]
  - Erythema [None]
  - Skin discolouration [None]
  - Skin burning sensation [None]
  - Deep vein thrombosis [None]

NARRATIVE: CASE EVENT DATE: 20180730
